FAERS Safety Report 5079924-0 (Version None)
Quarter: 2006Q3

REPORT INFORMATION
  Report Type: 
  Country: None (occurrence: None)
  Receive Date: 20060809
  Receipt Date: 20060727
  Transmission Date: 20061208
  Serious: Yes (Other)
  Sender: FDA-Public Use
  Company Number: PHBS2006GB11282

PATIENT
  Age: 1 Day
  Sex: Female

DRUGS (3)
  1. CYCLOSPORINE [Suspect]
     Dosage: TRANSPLACENTAL
     Route: 064
  2. AZATHIOPRINE SANDOZ (NGX) (AZATHIOPRINE) [Suspect]
     Dosage: TRANSPLACENTAL
     Route: 064
  3. METHYLPREDNISOLONE (NGX) (METHYLPREDNISOLONE) [Suspect]
     Dosage: TRANSPLACENTAL
     Route: 064

REACTIONS (3)
  - DRUG EXPOSURE DURING PREGNANCY [None]
  - MATERNAL CONDITION AFFECTING FOETUS [None]
  - PREMATURE BABY [None]
